FAERS Safety Report 13791401 (Version 1)
Quarter: 2017Q3

REPORT INFORMATION
  Report Type: Report from Study
  Country: BR (occurrence: BR)
  Receive Date: 20170725
  Receipt Date: 20170725
  Transmission Date: 20171127
  Serious: Yes (Other)
  Sender: FDA-Public Use
  Company Number: PHHY2017BR107526

PATIENT
  Sex: Male
  Weight: 100 kg

DRUGS (1)
  1. EXELON PATCH [Suspect]
     Active Substance: RIVASTIGMINE
     Indication: DEMENTIA
     Dosage: 4.6 MG, QD, PATCH (5 CM2)
     Route: 062
     Dates: start: 201612

REACTIONS (6)
  - Confusional state [Recovering/Resolving]
  - Feeling abnormal [Recovered/Resolved with Sequelae]
  - Urinary tract infection [Recovered/Resolved with Sequelae]
  - Motor dysfunction [Unknown]
  - Movement disorder [Unknown]
  - Dementia [Recovered/Resolved with Sequelae]
